FAERS Safety Report 5840973-3 (Version None)
Quarter: 2008Q3

REPORT INFORMATION
  Report Type: 
  Country: None (occurrence: None)
  Receive Date: 20080811
  Receipt Date: 20080729
  Transmission Date: 20090109
  Serious: Yes (Death, Other)
  Sender: FDA-Public Use
  Company Number: SI-GENENTECH-265862

PATIENT
  Age: 73 Year
  Sex: Female

DRUGS (5)
  1. MABTHERA [Suspect]
     Indication: NON-HODGKIN'S LYMPHOMA
     Dosage: 600 MG, UNK
     Route: 065
     Dates: start: 20080305
  2. VINCRISTINE [Suspect]
     Indication: NON-HODGKIN'S LYMPHOMA
     Dosage: 2 MG, UNK
     Route: 065
     Dates: start: 20080305
  3. ENDOXAN [Concomitant]
     Indication: DRUG USE FOR UNKNOWN INDICATION
     Dosage: UNK
     Route: 065
     Dates: start: 20080305
  4. ADRIBLASTINA [Concomitant]
     Indication: DRUG USE FOR UNKNOWN INDICATION
     Dosage: UNK
     Route: 065
     Dates: start: 20080305
  5. SOLU-MEDROL [Concomitant]
     Indication: DRUG USE FOR UNKNOWN INDICATION
     Route: 065

REACTIONS (1)
  - NEUROTOXICITY [None]
